FAERS Safety Report 5279543-7 (Version None)
Quarter: 2007Q1

REPORT INFORMATION
  Report Type: 
  Country: None (occurrence: None)
  Receive Date: 20070322
  Receipt Date: 20070309
  Transmission Date: 20070707
  Serious: Yes (Hospitalization)
  Sender: FDA-Public Use
  Company Number: US-CVT-070073

PATIENT
  Age: 80 Year
  Sex: Female

DRUGS (12)
  1. RANEXA [Suspect]
     Indication: ANGINA PECTORIS
     Dosage: 500 MG, BID, ORAL
     Route: 048
     Dates: start: 20070212, end: 20070216
  2. VYTORIN [Concomitant]
  3. VASOTEC [Concomitant]
  4. METOPROLOL/00376901/ (METOPROLOL) [Concomitant]
  5. LASIX [Concomitant]
  6. SEROQUEL /01270901/ (QUETIAPINE) [Concomitant]
  7. MOBIC [Concomitant]
  8. ASPIRIN [Concomitant]
  9. NAMENDA [Concomitant]
  10. IMDUR [Concomitant]
  11. ALDACTONE [Concomitant]
  12. ARICEPT [Concomitant]

REACTIONS (2)
  - BLOOD CREATININE INCREASED [None]
  - TIC [None]
